FAERS Safety Report 17426059 (Version 6)
Quarter: 2020Q4

REPORT INFORMATION
  Report Type: Other
  Country: KR (occurrence: KR)
  Receive Date: 20200218
  Receipt Date: 20201201
  Transmission Date: 20210113
  Serious: Yes (Other)
  Sender: FDA-Public Use
  Company Number: KR-ROCHE-2545615

PATIENT
  Age: 64 Year
  Sex: Female

DRUGS (20)
  1. NEOPLATIN (SOUTH KOREA) [Concomitant]
     Route: 042
     Dates: start: 20191031, end: 20191031
  2. NEOPLATIN (SOUTH KOREA) [Concomitant]
     Route: 042
     Dates: start: 20191213, end: 20191213
  3. TRASTUZUMAB. [Suspect]
     Active Substance: TRASTUZUMAB
     Route: 058
     Dates: start: 20191031, end: 20191031
  4. DOCETAXEL. [Suspect]
     Active Substance: DOCETAXEL
     Route: 042
     Dates: start: 20191031, end: 20191031
  5. DOCETAXEL. [Suspect]
     Active Substance: DOCETAXEL
     Route: 042
     Dates: start: 20191213, end: 20191213
  6. PERTUZUMAB. [Suspect]
     Active Substance: PERTUZUMAB
     Dosage: THE SUBSEQUENT DOSE WAS REPEATED ON 08/OCT/2019, 31/OCT/2019, 21/NOV/2019 AND 13/DEC/2019.
     Route: 065
     Dates: start: 20190917
  7. NEOPLATIN (SOUTH KOREA) [Concomitant]
     Route: 042
     Dates: start: 20191121, end: 20191121
  8. HEBRON-F [Concomitant]
     Route: 048
     Dates: start: 20191008, end: 20191108
  9. NEURONTIN [Concomitant]
     Active Substance: GABAPENTIN
     Indication: PERIPHERAL SENSORY NEUROPATHY
     Route: 048
     Dates: start: 20191128, end: 20191227
  10. PERTUZUMAB. [Suspect]
     Active Substance: PERTUZUMAB
     Indication: BREAST CANCER
     Route: 065
     Dates: start: 20190827
  11. DOCETAXEL. [Suspect]
     Active Substance: DOCETAXEL
     Indication: BREAST CANCER
     Route: 042
     Dates: start: 20191008, end: 20191008
  12. DOCETAXEL. [Suspect]
     Active Substance: DOCETAXEL
     Route: 042
     Dates: start: 20191121, end: 20191121
  13. LANSTON [Concomitant]
     Active Substance: LANSOPRAZOLE
     Route: 048
     Dates: start: 20191008, end: 20191030
  14. TANTUM [Concomitant]
     Active Substance: BENZYDAMINE HYDROCHLORIDE
     Dates: start: 20191008, end: 20191024
  15. TANTUM [Concomitant]
     Active Substance: BENZYDAMINE HYDROCHLORIDE
     Dates: start: 20191018, end: 20191018
  16. TRASTUZUMAB. [Suspect]
     Active Substance: TRASTUZUMAB
     Indication: BREAST CANCER
     Route: 058
     Dates: start: 20191008, end: 20191008
  17. TRASTUZUMAB. [Suspect]
     Active Substance: TRASTUZUMAB
     Route: 058
     Dates: start: 20191121, end: 20191121
  18. TRASTUZUMAB. [Suspect]
     Active Substance: TRASTUZUMAB
     Route: 058
     Dates: start: 20191213, end: 20191213
  19. NEOPLATIN (SOUTH KOREA) [Concomitant]
     Route: 042
     Dates: start: 20191008
  20. GASTIN [Concomitant]
     Route: 048
     Dates: start: 20191008, end: 20191030

REACTIONS (13)
  - Neutropenia [Recovered/Resolved]
  - Myalgia [Recovered/Resolved]
  - Nausea [Recovered/Resolved]
  - Myalgia [Recovered/Resolved]
  - Insomnia [Recovered/Resolved]
  - Decreased appetite [Recovered/Resolved]
  - Rhinorrhoea [Recovered/Resolved]
  - Neuropathy peripheral [Recovered/Resolved]
  - Anaemia [Recovered/Resolved]
  - Alanine aminotransferase increased [Recovered/Resolved]
  - Aspartate aminotransferase increased [Recovered/Resolved]
  - Haemorrhoids [Recovered/Resolved]
  - Anaemia [Recovered/Resolved]

NARRATIVE: CASE EVENT DATE: 20191008
